FAERS Safety Report 14155302 (Version 1)
Quarter: 2017Q4

REPORT INFORMATION
  Report Type: Spontaneous
  Country: US (occurrence: US)
  Receive Date: 20171103
  Receipt Date: 20171103
  Transmission Date: 20180321
  Serious: Yes (Other)
  Sender: FDA-Public Use
  Company Number: US-HQ SPECIALTY-US-2017INT000381

PATIENT
  Age: 44 Year
  Sex: Male

DRUGS (2)
  1. 5-FLUOROURACIL                     /00098801/ [Suspect]
     Active Substance: FLUOROURACIL
     Indication: NASOPHARYNGEAL CANCER
     Dosage: 5 CYCLES
     Route: 065
  2. CISPLATIN. [Suspect]
     Active Substance: CISPLATIN
     Indication: NASOPHARYNGEAL CANCER
     Dosage: 5 CYCLES
     Route: 065

REACTIONS (3)
  - Libido decreased [Unknown]
  - Testicular injury [Unknown]
  - Headache [Unknown]

NARRATIVE: CASE EVENT DATE: 2008
